FAERS Safety Report 14740708 (Version 18)
Quarter: 2024Q1

REPORT INFORMATION
  Report Type: Spontaneous
  Country: ES (occurrence: ES)
  Receive Date: 20180410
  Receipt Date: 20240327
  Transmission Date: 20240409
  Serious: Yes (Hospitalization, Disabling, Other)
  Sender: FDA-Public Use
  Company Number: ES-GKKIN-20180326-PI390549-1

PATIENT
  Age: 75 Year
  Sex: Female

DRUGS (21)
  1. DULOXETINE HYDROCHLORIDE [Suspect]
     Active Substance: DULOXETINE HYDROCHLORIDE
     Indication: Major depression
     Dosage: 60 MG, DAILY
     Route: 065
     Dates: end: 201507
  2. DULOXETINE HYDROCHLORIDE [Suspect]
     Active Substance: DULOXETINE HYDROCHLORIDE
     Indication: Antidepressant therapy
  3. TRAZODONE [Suspect]
     Active Substance: TRAZODONE HYDROCHLORIDE
     Indication: Major depression
     Dosage: 100 MG, EVERY 24 HOURS
     Route: 065
     Dates: start: 201506, end: 201507
  4. TRAZODONE [Suspect]
     Active Substance: TRAZODONE HYDROCHLORIDE
     Indication: Antidepressant therapy
  5. SULPIRIDE [Suspect]
     Active Substance: SULPIRIDE
     Indication: Major depression
     Dosage: 50 MG, EVERY 24 HOURS
     Route: 065
     Dates: start: 201411
  6. SULPIRIDE [Suspect]
     Active Substance: SULPIRIDE
     Indication: Antidepressant therapy
  7. LEVOSULPIRIDE [Suspect]
     Active Substance: LEVOSULPIRIDE
     Indication: Major depression
     Dosage: 25 MG, EVERY 8 HRS
     Route: 065
     Dates: end: 201507
  8. LEVOSULPIRIDE [Suspect]
     Active Substance: LEVOSULPIRIDE
     Indication: Antidepressant therapy
  9. CLOMIPRAMINE [Suspect]
     Active Substance: CLOMIPRAMINE
     Indication: Major depression
     Dosage: 50 MG, EVERY 24 HOURS
     Route: 065
     Dates: end: 20150703
  10. CLOMIPRAMINE [Suspect]
     Active Substance: CLOMIPRAMINE
     Indication: Antidepressant therapy
  11. ENALAPRIL [Concomitant]
     Active Substance: ENALAPRIL
     Indication: Hypertension
     Dosage: UNK UNK, UNKNOWN
     Route: 065
  12. HYDROCHLOROTHIAZIDE [Concomitant]
     Active Substance: HYDROCHLOROTHIAZIDE
     Indication: Hypertension
     Dosage: UNK UNK, UNKNOWN
     Route: 065
  13. DILTIAZEM [Concomitant]
     Active Substance: DILTIAZEM
     Indication: Hypertension
     Dosage: UNK UNK, UNKNOWN
     Route: 065
  14. PROPRANOLOL [Concomitant]
     Active Substance: PROPRANOLOL HYDROCHLORIDE
     Indication: Hypertension
     Dosage: UNK UNK, UNKNOWN
     Route: 065
  15. SOLIFENACIN [Concomitant]
     Active Substance: SOLIFENACIN
     Indication: Hypertension
     Dosage: UNK UNK, UNKNOWN
     Route: 065
  16. OMEPRAZOLE [Concomitant]
     Active Substance: OMEPRAZOLE
     Indication: Product used for unknown indication
     Dosage: UNK UNK, UNKNOWN
     Route: 065
  17. ACETAMINOPHEN [Concomitant]
     Active Substance: ACETAMINOPHEN
     Indication: Hypertension
     Dosage: UNK UNK, UNKNOWN
     Route: 065
  18. EZETIMIBE [Concomitant]
     Active Substance: EZETIMIBE
     Indication: Dyslipidaemia
     Dosage: UNK UNK, UNKNOWN
     Route: 065
  19. METFORMIN [Concomitant]
     Active Substance: METFORMIN HYDROCHLORIDE
     Indication: Type 2 diabetes mellitus
     Dosage: UNK UNK, UNKNOWN
     Route: 065
  20. METFORMIN [Concomitant]
     Active Substance: METFORMIN HYDROCHLORIDE
     Dosage: UNK, UNKNOWN
     Route: 065
  21. ASPIRIN [Concomitant]
     Active Substance: ASPIRIN
     Indication: Type 2 diabetes mellitus
     Dosage: UNK, UNKNOWN
     Route: 065

REACTIONS (2)
  - Cerebellar syndrome [Unknown]
  - Serotonin syndrome [Unknown]

NARRATIVE: CASE EVENT DATE: 20150702
